FAERS Safety Report 4419044-9 (Version None)
Quarter: 2004Q3

REPORT INFORMATION
  Report Type: 
  Country: None (occurrence: None)
  Receive Date: 20040806
  Receipt Date: 20040806
  Transmission Date: 20050211
  Serious: Yes (Hospitalization)
  Sender: FDA-Public Use
  Company Number: None

PATIENT
  Age: 71 Year
  Sex: Female
  Weight: 92.9874 kg

DRUGS (8)
  1. TAXOL [Suspect]
     Indication: ENDOMETRIAL CANCER
     Dosage: 350 MG IV
     Route: 042
     Dates: start: 20040316
  2. TAXOL [Suspect]
     Indication: ENDOMETRIAL CANCER
     Dosage: 350 MG IV
     Route: 042
     Dates: start: 20040420
  3. TAXOL [Suspect]
     Indication: ENDOMETRIAL CANCER
     Dosage: 350 MG IV
     Route: 042
     Dates: start: 20040518
  4. TAXOL [Suspect]
     Indication: ENDOMETRIAL CANCER
     Dosage: 350 MG IV
     Route: 042
     Dates: start: 20040608
  5. CARBOPLATIN [Suspect]
     Dosage: 425 MG IV
     Route: 042
     Dates: start: 20040316
  6. CARBOPLATIN [Suspect]
     Dosage: 425 MG IV
     Route: 042
     Dates: start: 20040420
  7. CARBOPLATIN [Suspect]
     Dosage: 425 MG IV
     Route: 042
     Dates: start: 20040518
  8. CARBOPLATIN [Suspect]
     Dosage: 425 MG IV
     Route: 042
     Dates: start: 20040608

REACTIONS (7)
  - ARTERIOSPASM CORONARY [None]
  - COMA [None]
  - ELECTROCARDIOGRAM ST SEGMENT DEPRESSION [None]
  - ELECTROCARDIOGRAM ST SEGMENT ELEVATION [None]
  - HYPERHIDROSIS [None]
  - HYPOTENSION [None]
  - LOSS OF CONSCIOUSNESS [None]
